FAERS Safety Report 12653952 (Version 2)
Quarter: 2016Q3

REPORT INFORMATION
  Report Type: Spontaneous
  Country: JP (occurrence: JP)
  Receive Date: 20160816
  Receipt Date: 20160908
  Transmission Date: 20161109
  Serious: Yes (Death, Other)
  Sender: FDA-Public Use
  Company Number: JP-BRISTOL-MYERS SQUIBB COMPANY-BMS-2016-066904

PATIENT
  Age: 87 Year
  Sex: Female

DRUGS (15)
  1. TRYPTANOL [Concomitant]
     Active Substance: AMITRIPTYLINE
     Dosage: 50 MG, QD, IRREGULAR INTAKE
     Route: 048
  2. HIRNAMIN [Concomitant]
     Active Substance: PHENOTHIAZINE
     Dosage: 10 MG, QD, IRREGULAR INTAKE
     Route: 048
  3. ROZEREM [Concomitant]
     Active Substance: RAMELTEON
     Dosage: 8 MG, QD, IRREGULAR INTAKE
     Route: 065
  4. ABILIFY MAINTENA [Suspect]
     Active Substance: ARIPIPRAZOLE
     Indication: SCHIZOPHRENIA
  5. ABILIFY [Suspect]
     Active Substance: ARIPIPRAZOLE
     Dosage: 6 MG, QD
     Route: 048
     Dates: start: 20160711, end: 20160718
  6. TRYPTANOL [Concomitant]
     Active Substance: AMITRIPTYLINE
     Indication: PRODUCT USED FOR UNKNOWN INDICATION
     Dosage: 50 MG, QD, IRREGULAR INTAKE
     Route: 048
  7. ROZEREM [Concomitant]
     Active Substance: RAMELTEON
     Indication: PRODUCT USED FOR UNKNOWN INDICATION
     Dosage: 8 MG, QD, IRREGULAR INTAKE
     Route: 065
  8. REMERON [Concomitant]
     Active Substance: MIRTAZAPINE
     Dosage: 50 MG, QD
     Route: 048
  9. ABILIFY [Suspect]
     Active Substance: ARIPIPRAZOLE
     Dosage: 3 MG, QD
     Route: 048
     Dates: start: 20160701, end: 20160710
  10. REMERON [Concomitant]
     Active Substance: MIRTAZAPINE
     Indication: PRODUCT USED FOR UNKNOWN INDICATION
     Dosage: 2 MG, QD, IRREGULAR INTAKE
     Route: 048
  11. EURODIN [Concomitant]
     Active Substance: ESTAZOLAM
     Dosage: 2 MG, QD, IRREGULAR INTAKE
     Route: 048
  12. ABILIFY MAINTENA [Suspect]
     Active Substance: ARIPIPRAZOLE
     Indication: BIPOLAR DISORDER
     Dosage: UNK
     Route: 030
     Dates: start: 20160727
  13. EURODIN [Concomitant]
     Active Substance: ESTAZOLAM
     Indication: PRODUCT USED FOR UNKNOWN INDICATION
     Dosage: 2 MG, QD, IRREGULAR INTAKE
     Route: 048
  14. ABILIFY [Suspect]
     Active Substance: ARIPIPRAZOLE
     Indication: BIPOLAR DISORDER
     Dosage: 9 MG, QD
     Route: 048
     Dates: start: 20160719
  15. HIRNAMIN [Concomitant]
     Active Substance: PHENOTHIAZINE
     Indication: PRODUCT USED FOR UNKNOWN INDICATION
     Dosage: 10 MG, QD, IRREGULAR INTAKE
     Route: 048

REACTIONS (1)
  - Death [Fatal]
